FAERS Safety Report 8845041 (Version 2)
Quarter: 2013Q1

REPORT INFORMATION
  Report Type: Spontaneous
  Country: US (occurrence: None)
  Receive Date: 20121015
  Receipt Date: 20130103
  Transmission Date: 20140127
  Serious: Yes (Hospitalization)
  Sender: FDA-Public Use
  Company Number: 003-095

PATIENT
  Age: 56 Year
  Sex: Male

DRUGS (1)
  1. CROFAB [Suspect]
     Indication: SNAKE BITE
     Dosage: AT LEAST 12 VIALS
     Dates: start: 20120920, end: 20120929

REACTIONS (3)
  - Thrombocytopenia [None]
  - Petechiae [None]
  - International normalised ratio decreased [None]
